FAERS Safety Report 9243579 (Version 2)
Quarter: 2013Q2

REPORT INFORMATION
  Report Type: Spontaneous
  Country: GB (occurrence: GB)
  Receive Date: 20130422
  Receipt Date: 20130425
  Transmission Date: 20140414
  Serious: Yes (Other)
  Sender: FDA-Public Use
  Company Number: GB-009507513-1304GBR008724

PATIENT
  Age: 16 Year
  Sex: Female
  Weight: 46 kg

DRUGS (2)
  1. IMPLANON [Suspect]
     Indication: CONTRACEPTION
     Dosage: 68 MG, UNK
     Route: 059
     Dates: start: 20080905, end: 20081121
  2. PIRITON [Concomitant]
     Indication: SEASONAL ALLERGY
     Dosage: AS NECESSARY

REACTIONS (3)
  - Dermatitis allergic [Unknown]
  - Implant site rash [Unknown]
  - Pruritus [Unknown]
